FAERS Safety Report 5616270-8 (Version None)
Quarter: 2008Q1

REPORT INFORMATION
  Report Type: 
  Country: None (occurrence: None)
  Receive Date: 20080204
  Receipt Date: 20080124
  Transmission Date: 20080703
  Serious: Yes (Other)
  Sender: FDA-Public Use
  Company Number: CHPA2008US01413

PATIENT
  Age: 27 Year
  Sex: Male

DRUGS (1)
  1. NODOZ(NCH)(CAFFEINE) CAPLET [Suspect]
     Dosage: 1 TO 3 DF, VIA FALSA

REACTIONS (6)
  - ABNORMAL BEHAVIOUR [None]
  - CONSTIPATION [None]
  - DIARRHOEA [None]
  - FEELING ABNORMAL [None]
  - HAEMATOCHEZIA [None]
  - INTENTIONAL DRUG MISUSE [None]
